FAERS Safety Report 4365380-4 (Version None)
Quarter: 2004Q2

REPORT INFORMATION
  Report Type: 
  Country: None (occurrence: None)
  Receive Date: 20040525
  Receipt Date: 20040504
  Transmission Date: 20050107
  Serious: No
  Sender: FDA-Public Use
  Company Number: RENA-11020

PATIENT
  Age: 42 Year
  Sex: Female
  Weight: 50 kg

DRUGS (7)
  1. RENAGEL [Suspect]
     Indication: HYPERPHOSPHATAEMIA
     Dosage: 0.8 G TID PO
     Route: 048
     Dates: start: 20040410, end: 20040422
  2. ENALAPRIL [Concomitant]
  3. ASPIRIN [Concomitant]
  4. SIMVASTATIN [Concomitant]
  5. DILTIAZEM [Concomitant]
  6. BUMETANIDE [Concomitant]
  7. INSULIN [Concomitant]

REACTIONS (1)
  - HYPOGLYCAEMIA [None]
